FAERS Safety Report 15484183 (Version 1)
Quarter: 2018Q4

REPORT INFORMATION
  Report Type: Spontaneous
  Country: US (occurrence: US)
  Receive Date: 20181003
  Receipt Date: 20181003
  Transmission Date: 20190205
  Serious: Yes (Other)
  Sender: FDA-Public Use
  Company Number: None

PATIENT
  Age: 71 Year
  Sex: Female
  Weight: 87.75 kg

DRUGS (9)
  1. PERCOCET [Concomitant]
     Active Substance: ACETAMINOPHEN\OXYCODONE HYDROCHLORIDE
  2. LORAZEPAM. [Concomitant]
     Active Substance: LORAZEPAM
  3. CAPECITABINE. [Suspect]
     Active Substance: CAPECITABINE
     Indication: COLON CANCER
  4. APRAZOLAM [Concomitant]
  5. DIPHENOXYLATE-ATROPINE [Concomitant]
     Active Substance: ATROPINE\DIPHENOXYLATE
  6. LISINOPRIL. [Concomitant]
     Active Substance: LISINOPRIL
  7. PROCHLORPERAZINE MALEATE. [Concomitant]
     Active Substance: PROCHLORPERAZINE MALEATE
  8. TRAZODONE [Concomitant]
     Active Substance: TRAZODONE HYDROCHLORIDE
  9. TRAMADOL. [Concomitant]
     Active Substance: TRAMADOL

REACTIONS (2)
  - Blister [None]
  - Gait disturbance [None]

NARRATIVE: CASE EVENT DATE: 20181003
